FAERS Safety Report 9522870 (Version 1)
Quarter: 2013Q1

REPORT INFORMATION
  Report Type: Spontaneous
  Country: US (occurrence: None)
  Receive Date: 20130305
  Receipt Date: 20130305
  Transmission Date: 20140127
  Serious: Yes (Other)
  Sender: FDA-Public Use
  Company Number: 163-21880-12080490

PATIENT
  Age: 69 Year
  Sex: Female
  Weight: 53.52 kg

DRUGS (2)
  1. REVLIMID (LENALIDOMIDE) (CAPSULES) [Suspect]
     Indication: PLASMA CELL MYELOMA
     Dosage: 11.25 MG, 21 IN 28 D, PO - PERMANENTLY DISCONTINUED
     Route: 048
     Dates: start: 20111230
  2. NEUPOGEN (FILGRASTIM) [Concomitant]

REACTIONS (2)
  - Plasma cell myeloma [None]
  - Disease progression [None]
